FAERS Safety Report 11806388 (Version 1)
Quarter: 2015Q4

REPORT INFORMATION
  Report Type: Spontaneous
  Country: US (occurrence: US)
  Receive Date: 20151207
  Receipt Date: 20151207
  Transmission Date: 20160305
  Serious: No
  Sender: FDA-Public Use
  Company Number: US-REGENERON PHARMACEUTICALS, INC.-2015-10773

PATIENT

DRUGS (8)
  1. EYLEA [Suspect]
     Active Substance: AFLIBERCEPT
     Indication: NEOVASCULAR AGE-RELATED MACULAR DEGENERATION
     Dosage: 2 MG MILLIGRAM(S), MONTHLY
     Route: 031
     Dates: start: 201410
  2. PROPAFENONE HCL [Concomitant]
     Active Substance: PROPAFENONE HYDROCHLORIDE
     Dosage: 150 MG MILLIGRAM(S), UNK
  3. PRESERVISION [Concomitant]
     Active Substance: MINERALS\VITAMINS
     Dosage: UNK
  4. NIFEDIPINE. [Concomitant]
     Active Substance: NIFEDIPINE
     Dosage: 30 MG MILLIGRAM(S), UNK
  5. VITAMIN D3 CALCIUM [Concomitant]
     Dosage: UNK
  6. EYLEA [Suspect]
     Active Substance: AFLIBERCEPT
     Dosage: 2 MG MILLIGRAM(S), EVERY 2 MONTHS STARTING WITH NEXT INJECTION
     Route: 031
     Dates: start: 20140211, end: 20140211
  7. ELIQUIS [Concomitant]
     Active Substance: APIXABAN
     Indication: PRODUCT USED FOR UNKNOWN INDICATION
     Dosage: 5 MG MILLIGRAM(S), UNK
  8. LOSARTAN. [Concomitant]
     Active Substance: LOSARTAN
     Dosage: 100 MG MILLIGRAM(S), UNK

REACTIONS (2)
  - Drug ineffective [Unknown]
  - Visual acuity reduced [Not Recovered/Not Resolved]

NARRATIVE: CASE EVENT DATE: 20150603
